FAERS Safety Report 5196425-X (Version None)
Quarter: 2006Q4

REPORT INFORMATION
  Report Type: 
  Country: None (occurrence: None)
  Receive Date: 20061226
  Receipt Date: 20061211
  Transmission Date: 20070319
  Serious: Yes (Other)
  Sender: FDA-Public Use
  Company Number: 2006BH014963

PATIENT
  Age: 17 Day
  Sex: Male

DRUGS (8)
  1. PHENYTOIN [Suspect]
     Indication: PROPHYLAXIS
     Dosage: 15 MG; IV
     Route: 042
  2. ATROPINE [Concomitant]
  3. ROCURONIUM [Concomitant]
  4. ISOFLURANE [Concomitant]
  5. FENTANYL TRANSDERMAL SYSTEM [Concomitant]
  6. DEXAMETHASONE [Concomitant]
  7. SODIUM CHLORIDE [Concomitant]
  8. NITROUS OXIDE W/ OXYGEN [Concomitant]

REACTIONS (2)
  - BLOOD PRESSURE IMMEASURABLE [None]
  - BRADYCARDIA [None]
